FAERS Safety Report 19485408 (Version 1)
Quarter: 2021Q3

REPORT INFORMATION
  Report Type: Spontaneous
  Country: NL (occurrence: NL)
  Receive Date: 20210702
  Receipt Date: 20210702
  Transmission Date: 20211014
  Serious: Yes (Hospitalization, Other)
  Sender: FDA-Public Use
  Company Number: NL-AUROBINDO-AUR-APL-2021-028266

PATIENT
  Sex: Female
  Weight: 72 kg

DRUGS (3)
  1. VENLAFAXINE PROLONGED RELEASED CAPSULES, HARD 75MG [Suspect]
     Active Substance: VENLAFAXINE HYDROCHLORIDE
     Indication: DEPRESSION
     Dosage: 1 DOSAGE FORM(CAPSULE MET GEREGULEERDE AFGIFTE, 75 MG (MILLIGRAM),
     Route: 065
     Dates: start: 202103, end: 20210525
  2. OXAZEPAM. [Concomitant]
     Active Substance: OXAZEPAM
     Indication: PRODUCT USED FOR UNKNOWN INDICATION
     Dosage: 10 MILLIGRAM(TABLET, 10 MG (MILLIGRAM)
     Route: 065
  3. PROMETHAZINE HYDROCHLORIDE. [Concomitant]
     Active Substance: PROMETHAZINE HYDROCHLORIDE
     Indication: PRODUCT USED FOR UNKNOWN INDICATION
     Dosage: 50 MILLIGRAM(TABLET 50 MG)
     Route: 065

REACTIONS (3)
  - Angina pectoris [Unknown]
  - Sinus tachycardia [Recovered/Resolved]
  - Chest discomfort [Recovered/Resolved]
